FAERS Safety Report 23751212 (Version 1)
Quarter: 2024Q2

REPORT INFORMATION
  Report Type: Spontaneous
  Country: AU (occurrence: AU)
  Receive Date: 20240417
  Receipt Date: 20240417
  Transmission Date: 20240715
  Serious: Yes (Hospitalization)
  Sender: FDA-Public Use
  Company Number: AU-BAYER-2024A053435

PATIENT
  Age: 63 Year
  Sex: Male

DRUGS (33)
  1. XARELTO [Suspect]
     Active Substance: RIVAROXABAN
     Indication: Product used for unknown indication
     Dosage: UNK
     Route: 048
  2. DARATUMUMAB [Suspect]
     Active Substance: DARATUMUMAB
     Indication: Plasma cell myeloma
     Dosage: 15 MILLILITRE
     Route: 058
     Dates: start: 20220419, end: 20230105
  3. TECLISTAMAB [Suspect]
     Active Substance: TECLISTAMAB
     Indication: Plasma cell myeloma
     Dosage: 6.7 MILLILITRE
     Route: 058
     Dates: start: 20220420, end: 20221103
  4. LENALIDOMIDE [Suspect]
     Active Substance: LENALIDOMIDE
     Indication: Plasma cell myeloma
     Dosage: 10 MG
     Route: 048
     Dates: start: 20220517, end: 20230122
  5. AMOXICILLIN\CLAVULANIC ACID [Concomitant]
     Active Substance: AMOXICILLIN\CLAVULANIC ACID
     Indication: Antibiotic prophylaxis
     Dosage: INTERVAL: 1 DAY
     Route: 048
  6. AMOXICILLIN\CLAVULANIC ACID [Concomitant]
     Active Substance: AMOXICILLIN\CLAVULANIC ACID
     Indication: Antibiotic prophylaxis
     Dosage: TABLET; INTERVAL: 1 DAY;
     Route: 048
     Dates: start: 20230127, end: 20230302
  7. SULFAMETHOXAZOLE\TRIMETHOPRIM [Concomitant]
     Active Substance: SULFAMETHOXAZOLE\TRIMETHOPRIM
     Indication: Infection prophylaxis
     Dosage: INTERVAL: 0 WEEK
     Route: 048
     Dates: start: 20220419
  8. HUMAN IMMUNOGLOBULIN G [Concomitant]
     Active Substance: HUMAN IMMUNOGLOBULIN G
     Indication: Supportive care
     Dosage: 40 G, SOLUTION; INTERVAL: 1 MONTH
     Route: 042
     Dates: start: 20221006
  9. PREGABALIN [Concomitant]
     Active Substance: PREGABALIN
     Indication: Peripheral sensory neuropathy
     Dosage: 75 MG
     Route: 048
     Dates: start: 20170101
  10. TIOTROPIUM BROMIDE [Concomitant]
     Active Substance: TIOTROPIUM BROMIDE
     Indication: Cough
     Dosage: 1 DOSE UNSPECIFIED; DOSE FORM: INHALANT; INTERVAL: 1 DAY
     Dates: start: 20220902
  11. ERGOCALCIFEROL [Concomitant]
     Active Substance: ERGOCALCIFEROL
     Indication: Nutritional supplementation
     Dosage: 2000 INTERNATIONAL UNI
     Dates: start: 20180101
  12. FILGRASTIM [Concomitant]
     Active Substance: FILGRASTIM
     Indication: Prophylaxis
     Dosage: 480 MICROGRAM; DOSE FORM: SOLUTION; INTERVAL: 1 WEEK
     Route: 058
     Dates: start: 20221012
  13. MAGNESIUM [Concomitant]
     Active Substance: MAGNESIUM
     Indication: Nutritional supplementation
     Dosage: 50 MILLIGRAM; DOSE FORM: TABLET; INTERVAL: 1 DAY
     Route: 048
     Dates: start: 20170101
  14. OMEPRAZOLE [Concomitant]
     Active Substance: OMEPRAZOLE
     Indication: Gastrooesophageal reflux prophylaxis
     Dosage: 20 MILLIGRAM; DOSE FORM: TABLET; INTERVAL: 1 DAY;
     Route: 048
     Dates: start: 20220419
  15. PAMIDRONATE DISODIUM [Concomitant]
     Active Substance: PAMIDRONATE DISODIUM
     Indication: Osteoporosis prophylaxis
     Dosage: : 90 MILLIGRAM; DOSE FORM: SOLUTION; INTERVAL: 3 MONTH
     Route: 042
     Dates: start: 20220531
  16. ACETAMINOPHEN [Concomitant]
     Active Substance: ACETAMINOPHEN
     Indication: Ligament sprain
     Dosage: : 1 GRAM; DOSE FORM: TABLET; INTERVAL: 1 AS NECESSARY
     Route: 048
     Dates: start: 20220807
  17. PREDNISOLONE [Concomitant]
     Active Substance: PREDNISOLONE
     Dosage: : 15 MILLIGRAM; DOSE FORM: TABLET; INTERVAL: 1 DAY
     Route: 048
     Dates: start: 20230114, end: 20230118
  18. PREDNISOLONE [Concomitant]
     Active Substance: PREDNISOLONE
     Dosage: 15 MILLIGRAM; DOSE FORM: TABLET; INTERVAL: 1 DAY
     Route: 048
     Dates: start: 20230119, end: 20230124
  19. PREDNISOLONE [Concomitant]
     Active Substance: PREDNISOLONE
     Dosage: 15 MILLIGRAM; DOSE FORM: TABLET; INTERVAL: 1 DAY;
     Route: 048
     Dates: start: 20230109, end: 20230113
  20. LYRICA [Concomitant]
     Active Substance: PREGABALIN
  21. DULOXETINE [Concomitant]
     Active Substance: DULOXETINE
  22. BACTRIM [Concomitant]
     Active Substance: SULFAMETHOXAZOLE\TRIMETHOPRIM
  23. PAMIDRONATE [Concomitant]
     Active Substance: PAMIDRONATE DISODIUM
  24. ALBUTEROL SULFATE [Concomitant]
     Active Substance: ALBUTEROL SULFATE
  25. BROMHEXINE [Concomitant]
     Active Substance: BROMHEXINE
  26. CHLOROFORM\CODEINE PHOSPHATE\DRIMIA MARITIMA BULB [Concomitant]
     Active Substance: CHLOROFORM\CODEINE PHOSPHATE\DRIMIA MARITIMA BULB
  27. SPIRIVA RESPIMAT [Concomitant]
     Active Substance: TIOTROPIUM BROMIDE
  28. AMOXICILLIN\CLAVULANATE POTASSIUM [Concomitant]
     Active Substance: AMOXICILLIN\CLAVULANATE POTASSIUM
  29. INTRAGAM P [Concomitant]
     Active Substance: HUMAN IMMUNOGLOBULIN G
  30. AZELASTINE [Concomitant]
     Active Substance: AZELASTINE\AZELASTINE HYDROCHLORIDE
  31. FLUTICASONE [Concomitant]
     Active Substance: FLUTICASONE
  32. VALACYCLOVIR HYDROCHLORIDE [Concomitant]
     Active Substance: VALACYCLOVIR HYDROCHLORIDE
  33. VITAMIN D NOS [Concomitant]
     Active Substance: VITAMIN D NOS

REACTIONS (1)
  - Lower respiratory tract infection [Recovered/Resolved]

NARRATIVE: CASE EVENT DATE: 20230123
